FAERS Safety Report 7830412-5 (Version None)
Quarter: 2011Q4

REPORT INFORMATION
  Report Type: 
  Country: None (occurrence: None)
  Receive Date: 20111021
  Receipt Date: 20111007
  Transmission Date: 20120403
  Serious: Yes (Other)
  Sender: FDA-Public Use
  Company Number: US-ENDO PHARMACEUTICALS INC.-OPIR20110064

PATIENT
  Age: 30 Year
  Sex: Male

DRUGS (1)
  1. OPANA [Suspect]
     Indication: IMPAIRED GASTRIC EMPTYING
     Route: 048
     Dates: start: 20110917

REACTIONS (2)
  - ANAPHYLACTIC REACTION [None]
  - DRUG DEPENDENCE [None]
